FAERS Safety Report 10086789 (Version 2)
Quarter: 2014Q2

REPORT INFORMATION
  Report Type: Spontaneous
  Country: US (occurrence: US)
  Receive Date: 20140418
  Receipt Date: 20140512
  Transmission Date: 20141212
  Serious: Yes (Hospitalization)
  Sender: FDA-Public Use
  Company Number: US-GLAXOSMITHKLINE-A1068909A

PATIENT
  Age: 83 Year
  Sex: Female

DRUGS (2)
  1. ADVAIR HFA [Suspect]
     Indication: DYSPNOEA
     Dosage: 1PUFF TWICE PER DAY
  2. UNKNOWN [Concomitant]

REACTIONS (1)
  - Myocardial infarction [Recovering/Resolving]
